FAERS Safety Report 8026809-3 (Version None)
Quarter: 2011Q4

REPORT INFORMATION
  Report Type: 
  Country: None (occurrence: None)
  Receive Date: 20111130
  Receipt Date: 20110908
  Transmission Date: 20120403
  Serious: Yes (Other)
  Sender: FDA-Public Use
  Company Number: US201109002284

PATIENT
  Age: 64 Year
  Sex: Male
  Weight: 99.3 kg

DRUGS (6)
  1. HUAMALOG (INSULIN LISPRO) [Concomitant]
  2. METFORMIN HCL [Concomitant]
  3. GLYBURIDE [Concomitant]
  4. BYETTA [Suspect]
     Indication: TYPE 2 DIABETES MELLITUS
     Dosage: 5 UG, BID, SUBCUTANEOUS, 10 UG, BID, SUBCUTANEOUS
     Route: 058
     Dates: start: 20071201, end: 20081001
  5. BYETTA [Suspect]
     Indication: TYPE 2 DIABETES MELLITUS
     Dosage: 5 UG, BID, SUBCUTANEOUS, 10 UG, BID, SUBCUTANEOUS
     Route: 058
     Dates: start: 20081101, end: 20110801
  6. LEVEMIR [Concomitant]

REACTIONS (2)
  - OFF LABEL USE [None]
  - RENAL IMPAIRMENT [None]
